FAERS Safety Report 4408412-7 (Version None)
Quarter: 2004Q3

REPORT INFORMATION
  Report Type: 
  Country: None (occurrence: None)
  Receive Date: 20040722
  Receipt Date: 20040624
  Transmission Date: 20050211
  Serious: Yes (Death)
  Sender: FDA-Public Use
  Company Number: 20040600328

PATIENT
  Age: 54 Year
  Sex: Female

DRUGS (4)
  1. FENTANYL [Suspect]
     Indication: ANAESTHESIA
     Dates: start: 20040107, end: 20040107
  2. MEPERIDINE HCL [Suspect]
     Indication: ANAESTHESIA
     Dates: start: 20040107, end: 20040107
  3. PROMETHAZINE [Suspect]
     Indication: ANAESTHESIA
     Dates: start: 20040107, end: 20040107
  4. PROPOFOL [Suspect]
     Indication: ANAESTHESIA
     Dates: start: 20040107, end: 20040107

REACTIONS (3)
  - CARDIO-RESPIRATORY ARREST [None]
  - COMA [None]
  - PROCEDURAL COMPLICATION [None]
